FAERS Safety Report 15932680 (Version 1)
Quarter: 2019Q1

REPORT INFORMATION
  Report Type: Spontaneous
  Country: JP (occurrence: JP)
  Receive Date: 20190207
  Receipt Date: 20190207
  Transmission Date: 20190417
  Serious: Yes (Other)
  Sender: FDA-Public Use
  Company Number: JP-PFIZER INC-2019046779

PATIENT

DRUGS (3)
  1. ISOTONIC SODIUM CHLORIDE SOLUTION [Concomitant]
     Active Substance: SODIUM CHLORIDE
     Dosage: UNK
  2. SOLU-MEDROL [Suspect]
     Active Substance: METHYLPREDNISOLONE SODIUM SUCCINATE
     Indication: INTERSTITIAL LUNG DISEASE
     Dosage: 500 MG, DAILY
  3. NEOPHYLLIN M [Concomitant]
     Active Substance: DYPHYLLINE
     Dosage: UNK

REACTIONS (2)
  - Respiratory disorder [Unknown]
  - Circulatory collapse [Unknown]
